FAERS Safety Report 8890909 (Version 2)
Quarter: 2012Q4

REPORT INFORMATION
  Report Type: 
  Country: VE (occurrence: VE)
  Receive Date: 20121106
  Receipt Date: 20121119
  Transmission Date: 20130627
  Serious: Yes (Hospitalization, Other)
  Sender: FDA-Public Use
  Company Number: VE-PFIZER INC-2012276263

PATIENT
  Age: 55 Year
  Sex: Female

DRUGS (4)
  1. LIPITOR [Suspect]
     Indication: HYPERCHOLESTEROLEMIA
     Dosage: 20 mg, 1x/day
     Route: 048
     Dates: start: 20120621, end: 20120626
  2. LIPITOR [Suspect]
     Indication: HYPERTRIGLYCERIDEMIA
  3. HYPERLIPEN [Concomitant]
     Indication: HYPERCHOLESTEROLEMIA
     Dosage: 100 mg, 1x/day
     Route: 048
     Dates: start: 20120621, end: 20120626
  4. HYPERLIPEN [Concomitant]
     Indication: HYPERTRIGLYCERIDEMIA

REACTIONS (5)
  - Rhabdomyolysis [Recovered/Resolved]
  - Amnesia [Recovered/Resolved]
  - Insomnia [Recovered/Resolved]
  - Anxiety [Recovered/Resolved]
  - Vertigo [Recovered/Resolved]
